FAERS Safety Report 23736878 (Version 1)
Quarter: 2024Q2

REPORT INFORMATION
  Report Type: Spontaneous
  Country: FR (occurrence: FR)
  Receive Date: 20240412
  Receipt Date: 20240412
  Transmission Date: 20240716
  Serious: Yes (Hospitalization, Other)
  Sender: FDA-Public Use
  Company Number: FR-SUN PHARMACEUTICAL INDUSTRIES LTD-2024RR-441854

PATIENT
  Age: 63 Year
  Sex: Female
  Weight: 67 kg

DRUGS (3)
  1. QUETIAPINE [Suspect]
     Active Substance: QUETIAPINE
     Indication: Product used for unknown indication
     Dosage: 6 GRAM, IN TOTAL
     Route: 048
     Dates: start: 20221216, end: 20221216
  2. LITHIUM [Concomitant]
     Active Substance: LITHIUM
     Indication: Bipolar disorder
     Dosage: 800 MILLIGRAM, DAILY
     Route: 048
  3. DEPAKOTE [Concomitant]
     Active Substance: DIVALPROEX SODIUM
     Indication: Bipolar disorder
     Dosage: 1 GRAM, DAILY
     Route: 048

REACTIONS (4)
  - Extrapyramidal disorder [Recovered/Resolved]
  - Suicide attempt [Unknown]
  - Dysarthria [Recovered/Resolved]
  - Hypertonia [Recovered/Resolved]

NARRATIVE: CASE EVENT DATE: 20221216
